FAERS Safety Report 23174939 (Version 1)
Quarter: 2023Q4

REPORT INFORMATION
  Report Type: Spontaneous
  Country: CA (occurrence: CA)
  Receive Date: 20231112
  Receipt Date: 20231112
  Transmission Date: 20240110
  Serious: Yes (Death, Hospitalization, Other)
  Sender: FDA-Public Use
  Company Number: CA-002147023-NVSC2023CA043979

PATIENT
  Age: 30 Year
  Sex: Male

DRUGS (185)
  1. ADVAIR HFA [Suspect]
     Active Substance: FLUTICASONE PROPIONATE\SALMETEROL XINAFOATE
     Dosage: 1000 MG, QD
     Route: 042
  2. ADVAIR HFA [Suspect]
     Active Substance: FLUTICASONE PROPIONATE\SALMETEROL XINAFOATE
     Dosage: 1000 MG, QD
     Route: 042
  3. ADVAIR HFA [Suspect]
     Active Substance: FLUTICASONE PROPIONATE\SALMETEROL XINAFOATE
     Dosage: 1000 MG, QD
     Route: 042
  4. ADVAIR HFA [Suspect]
     Active Substance: FLUTICASONE PROPIONATE\SALMETEROL XINAFOATE
     Dosage: 1000 MG, QD
     Route: 042
  5. ADVAIR HFA [Suspect]
     Active Substance: FLUTICASONE PROPIONATE\SALMETEROL XINAFOATE
     Dosage: 1000 MG, QD
     Route: 065
  6. ADVAIR HFA [Suspect]
     Active Substance: FLUTICASONE PROPIONATE\SALMETEROL XINAFOATE
     Dosage: 1000 MG, QD
     Route: 065
  7. ADVAIR HFA [Suspect]
     Active Substance: FLUTICASONE PROPIONATE\SALMETEROL XINAFOATE
     Dosage: 1000 MG, QD
     Route: 065
  8. ADVAIR HFA [Suspect]
     Active Substance: FLUTICASONE PROPIONATE\SALMETEROL XINAFOATE
     Dosage: 1000 MG, QD
     Route: 065
  9. ADVAIR HFA [Suspect]
     Active Substance: FLUTICASONE PROPIONATE\SALMETEROL XINAFOATE
     Dosage: 1000 MG, QD (1 EVERY 1 DAY)
     Route: 042
  10. ADVAIR HFA [Suspect]
     Active Substance: FLUTICASONE PROPIONATE\SALMETEROL XINAFOATE
     Dosage: 1000 MG, QD (1 EVERY 1 DAY)
     Route: 065
  11. ADVAIR HFA [Suspect]
     Active Substance: FLUTICASONE PROPIONATE\SALMETEROL XINAFOATE
     Dosage: 1000 MG, QD (1 EVERY 1 DAY)
     Route: 065
  12. ADVAIR HFA [Suspect]
     Active Substance: FLUTICASONE PROPIONATE\SALMETEROL XINAFOATE
     Dosage: 500 MG, QD
     Route: 065
  13. ADVAIR HFA [Suspect]
     Active Substance: FLUTICASONE PROPIONATE\SALMETEROL XINAFOATE
     Dosage: 500 MG, QD
     Route: 065
  14. ADVAIR HFA [Suspect]
     Active Substance: FLUTICASONE PROPIONATE\SALMETEROL XINAFOATE
     Indication: Product used for unknown indication
     Dosage: 500 MG, QD (1 EVERY 1 DAY)
     Route: 065
  15. ADVAIR HFA [Suspect]
     Active Substance: FLUTICASONE PROPIONATE\SALMETEROL XINAFOATE
     Dosage: 500 MG, QD (1 EVERY 1 DAY)
     Route: 065
  16. ADVAIR HFA [Suspect]
     Active Substance: FLUTICASONE PROPIONATE\SALMETEROL XINAFOATE
     Dosage: 500 MG, QD (1 EVERY 1 DAY)
     Route: 065
  17. ADVAIR HFA [Suspect]
     Active Substance: FLUTICASONE PROPIONATE\SALMETEROL XINAFOATE
     Dosage: 500 MG, QD (1 EVERY 1 DAY)
     Route: 065
  18. ADVAIR HFA [Suspect]
     Active Substance: FLUTICASONE PROPIONATE\SALMETEROL XINAFOATE
     Dosage: 500 MG, Q12H (1 EVERY 12 HOURS)
     Route: 042
  19. ADVAIR HFA [Suspect]
     Active Substance: FLUTICASONE PROPIONATE\SALMETEROL XINAFOATE
     Dosage: 500 MG, Q12H (1 EVERY 12 HOURS)
     Route: 065
  20. ADVAIR HFA [Suspect]
     Active Substance: FLUTICASONE PROPIONATE\SALMETEROL XINAFOATE
     Dosage: 500 MG, Q12H (1 EVERY 12 HOURS)
     Route: 065
  21. ADVAIR HFA [Suspect]
     Active Substance: FLUTICASONE PROPIONATE\SALMETEROL XINAFOATE
     Dosage: 500 MG
     Route: 042
  22. ADVAIR HFA [Suspect]
     Active Substance: FLUTICASONE PROPIONATE\SALMETEROL XINAFOATE
     Dosage: 500 UG, QD
     Route: 065
  23. ADVAIR HFA [Suspect]
     Active Substance: FLUTICASONE PROPIONATE\SALMETEROL XINAFOATE
     Dosage: 500 UG, QD
     Route: 065
  24. ADVAIR HFA [Suspect]
     Active Substance: FLUTICASONE PROPIONATE\SALMETEROL XINAFOATE
     Dosage: 500 UG, QD
     Route: 065
  25. ADVAIR HFA [Suspect]
     Active Substance: FLUTICASONE PROPIONATE\SALMETEROL XINAFOATE
     Dosage: 500 UG, QD
     Route: 065
  26. ADVAIR HFA [Suspect]
     Active Substance: FLUTICASONE PROPIONATE\SALMETEROL XINAFOATE
     Dosage: UNK
     Route: 065
  27. ADVAIR HFA [Suspect]
     Active Substance: FLUTICASONE PROPIONATE\SALMETEROL XINAFOATE
     Dosage: UNK
     Route: 065
  28. ADVAIR HFA [Suspect]
     Active Substance: FLUTICASONE PROPIONATE\SALMETEROL XINAFOATE
     Dosage: UNK
     Route: 065
  29. ADVAIR HFA [Suspect]
     Active Substance: FLUTICASONE PROPIONATE\SALMETEROL XINAFOATE
     Dosage: UNK
     Route: 065
  30. ADVAIR HFA [Suspect]
     Active Substance: FLUTICASONE PROPIONATE\SALMETEROL XINAFOATE
     Dosage: UNK
     Route: 065
  31. ADVAIR HFA [Suspect]
     Active Substance: FLUTICASONE PROPIONATE\SALMETEROL XINAFOATE
     Dosage: UNK
     Route: 065
  32. ADVAIR HFA [Suspect]
     Active Substance: FLUTICASONE PROPIONATE\SALMETEROL XINAFOATE
     Dosage: UNK (1 EVERY 6 MONTHS)
     Route: 065
  33. ATROVENT [Suspect]
     Active Substance: IPRATROPIUM BROMIDE
     Dosage: 1000 MG, QD
     Route: 042
  34. ATROVENT [Suspect]
     Active Substance: IPRATROPIUM BROMIDE
     Dosage: 1000 MG, QD
     Route: 042
  35. ATROVENT [Suspect]
     Active Substance: IPRATROPIUM BROMIDE
     Dosage: 1000 MG, QD
     Route: 042
  36. ATROVENT [Suspect]
     Active Substance: IPRATROPIUM BROMIDE
     Dosage: 1000 MG, QD
     Route: 042
  37. ATROVENT [Suspect]
     Active Substance: IPRATROPIUM BROMIDE
     Dosage: 1000 MG, QD
     Route: 065
  38. ATROVENT [Suspect]
     Active Substance: IPRATROPIUM BROMIDE
     Dosage: 1000 MG, QD
     Route: 065
  39. ATROVENT [Suspect]
     Active Substance: IPRATROPIUM BROMIDE
     Dosage: 1000 MG, QD
     Route: 065
  40. ATROVENT [Suspect]
     Active Substance: IPRATROPIUM BROMIDE
     Dosage: 1000 MG, QD
     Route: 065
  41. ATROVENT [Suspect]
     Active Substance: IPRATROPIUM BROMIDE
     Dosage: 1000 MG, QD
     Route: 065
  42. ATROVENT [Suspect]
     Active Substance: IPRATROPIUM BROMIDE
     Dosage: 1000 MG, QD
     Route: 065
  43. ATROVENT [Suspect]
     Active Substance: IPRATROPIUM BROMIDE
     Dosage: 500 MG, QD
     Route: 065
  44. ATROVENT [Suspect]
     Active Substance: IPRATROPIUM BROMIDE
     Dosage: 500 MG, QD
     Route: 065
  45. ATROVENT [Suspect]
     Active Substance: IPRATROPIUM BROMIDE
     Dosage: 500 MG, QD
     Route: 065
  46. ATROVENT [Suspect]
     Active Substance: IPRATROPIUM BROMIDE
     Dosage: 500 MG, QD
     Route: 065
  47. ATROVENT [Suspect]
     Active Substance: IPRATROPIUM BROMIDE
     Dosage: 500 MG, QD
     Route: 065
  48. ATROVENT [Suspect]
     Active Substance: IPRATROPIUM BROMIDE
     Dosage: 500 MG, QD
     Route: 065
  49. ATROVENT [Suspect]
     Active Substance: IPRATROPIUM BROMIDE
     Dosage: 500 MG, QD
     Route: 065
  50. ATROVENT [Suspect]
     Active Substance: IPRATROPIUM BROMIDE
     Dosage: 500 MG, QD
     Route: 065
  51. ATROVENT [Suspect]
     Active Substance: IPRATROPIUM BROMIDE
     Dosage: 500 MG, Q12H
     Route: 065
  52. ATROVENT [Suspect]
     Active Substance: IPRATROPIUM BROMIDE
     Dosage: 500 MG, Q12H
     Route: 065
  53. ATROVENT [Suspect]
     Active Substance: IPRATROPIUM BROMIDE
     Indication: Asthma
     Dosage: UNK
     Route: 065
  54. ATROVENT [Suspect]
     Active Substance: IPRATROPIUM BROMIDE
     Dosage: UNK
     Route: 065
  55. ATROVENT [Suspect]
     Active Substance: IPRATROPIUM BROMIDE
     Dosage: UNK
     Route: 065
  56. ATROVENT [Suspect]
     Active Substance: IPRATROPIUM BROMIDE
     Dosage: UNK
     Route: 065
  57. ATROVENT [Suspect]
     Active Substance: IPRATROPIUM BROMIDE
     Dosage: UNK
     Route: 065
  58. ATROVENT [Suspect]
     Active Substance: IPRATROPIUM BROMIDE
     Dosage: UNK
     Route: 065
  59. ATROVENT [Suspect]
     Active Substance: IPRATROPIUM BROMIDE
     Dosage: UNK
     Route: 065
  60. ATROVENT [Suspect]
     Active Substance: IPRATROPIUM BROMIDE
     Dosage: UNK
     Route: 065
  61. CETIRIZINE [Suspect]
     Active Substance: CETIRIZINE HYDROCHLORIDE
     Dosage: 2 DOSAGE FORM, QD
     Route: 065
  62. CETIRIZINE [Suspect]
     Active Substance: CETIRIZINE HYDROCHLORIDE
     Dosage: UNK, QD (1 EVERY 1 DAY)
     Route: 065
  63. CETIRIZINE [Suspect]
     Active Substance: CETIRIZINE HYDROCHLORIDE
     Indication: Multiple allergies
     Dosage: UNK
     Route: 065
  64. CETIRIZINE HYDROCHLORIDE [Suspect]
     Active Substance: CETIRIZINE HYDROCHLORIDE
     Dosage: 1 DOSAGE FORM, QD
     Route: 065
  65. CETIRIZINE HYDROCHLORIDE [Suspect]
     Active Substance: CETIRIZINE HYDROCHLORIDE
     Dosage: 1 DOSAGE FORM, QD
     Route: 065
  66. CETIRIZINE HYDROCHLORIDE [Suspect]
     Active Substance: CETIRIZINE HYDROCHLORIDE
     Dosage: 1 DOSAGE FORM, QD
     Route: 065
  67. CETIRIZINE HYDROCHLORIDE [Suspect]
     Active Substance: CETIRIZINE HYDROCHLORIDE
     Dosage: 2 DOSAGE FORM, QD
     Route: 065
  68. CETIRIZINE HYDROCHLORIDE [Suspect]
     Active Substance: CETIRIZINE HYDROCHLORIDE
     Dosage: 2 DOSAGE FORM, QD
     Route: 065
  69. CETIRIZINE HYDROCHLORIDE [Suspect]
     Active Substance: CETIRIZINE HYDROCHLORIDE
     Dosage: 2 DOSAGE FORM, QD
     Route: 065
  70. CETIRIZINE HYDROCHLORIDE [Suspect]
     Active Substance: CETIRIZINE HYDROCHLORIDE
     Dosage: 2 DOSAGE FORM, QD
     Route: 065
  71. CETIRIZINE HYDROCHLORIDE [Suspect]
     Active Substance: CETIRIZINE HYDROCHLORIDE
     Dosage: 2 DOSAGE FORM, QD
     Route: 065
  72. CETIRIZINE HYDROCHLORIDE [Suspect]
     Active Substance: CETIRIZINE HYDROCHLORIDE
     Dosage: 2 DOSAGE FORM, QD
     Route: 065
  73. CETIRIZINE HYDROCHLORIDE [Suspect]
     Active Substance: CETIRIZINE HYDROCHLORIDE
     Dosage: 2 DOSAGE FORM, QD
     Route: 065
  74. CETIRIZINE HYDROCHLORIDE [Suspect]
     Active Substance: CETIRIZINE HYDROCHLORIDE
     Dosage: 2 DOSAGE FORM, QD
     Route: 065
  75. CETIRIZINE HYDROCHLORIDE [Suspect]
     Active Substance: CETIRIZINE HYDROCHLORIDE
     Dosage: 2 DOSAGE FORM, QD
     Route: 065
  76. CETIRIZINE HYDROCHLORIDE [Suspect]
     Active Substance: CETIRIZINE HYDROCHLORIDE
     Dosage: 2 DOSAGE FORM, QD
     Route: 065
  77. CETIRIZINE HYDROCHLORIDE [Suspect]
     Active Substance: CETIRIZINE HYDROCHLORIDE
     Dosage: UNK, QD
     Route: 065
  78. CETIRIZINE HYDROCHLORIDE [Suspect]
     Active Substance: CETIRIZINE HYDROCHLORIDE
     Indication: Multiple allergies
     Dosage: UNK, QD (1 EVERY 1 DAY)
     Route: 065
  79. CETIRIZINE HYDROCHLORIDE [Suspect]
     Active Substance: CETIRIZINE HYDROCHLORIDE
     Dosage: UNK
     Route: 065
  80. CETIRIZINE HYDROCHLORIDE [Suspect]
     Active Substance: CETIRIZINE HYDROCHLORIDE
     Dosage: UNK
     Route: 065
  81. CETIRIZINE HYDROCHLORIDE [Suspect]
     Active Substance: CETIRIZINE HYDROCHLORIDE
     Dosage: UNK
     Route: 065
  82. CETIRIZINE HYDROCHLORIDE [Suspect]
     Active Substance: CETIRIZINE HYDROCHLORIDE
     Dosage: UNK
     Route: 065
  83. CETIRIZINE HYDROCHLORIDE [Suspect]
     Active Substance: CETIRIZINE HYDROCHLORIDE
     Dosage: UNK
     Route: 065
  84. CETIRIZINE HYDROCHLORIDE [Suspect]
     Active Substance: CETIRIZINE HYDROCHLORIDE
     Dosage: UNK
     Route: 065
  85. CETIRIZINE HYDROCHLORIDE [Suspect]
     Active Substance: CETIRIZINE HYDROCHLORIDE
     Dosage: UNK
     Route: 065
  86. CICLESONIDE [Suspect]
     Active Substance: CICLESONIDE
     Dosage: 2 DOSAGE FORM, QD
     Route: 055
  87. CICLESONIDE [Suspect]
     Active Substance: CICLESONIDE
     Dosage: 2 DOSAGE FORM, QD
     Route: 055
  88. CICLESONIDE [Suspect]
     Active Substance: CICLESONIDE
     Dosage: 2 DOSAGE FORM, QD (1 EVERY 1 DAY)
     Route: 055
  89. CICLESONIDE [Suspect]
     Active Substance: CICLESONIDE
     Dosage: 2 DOSAGE FORM, QD (1 EVERY 1 DAY)
     Route: 055
  90. CICLESONIDE [Suspect]
     Active Substance: CICLESONIDE
     Dosage: 2 DOSAGE FORM, QD (1 EVERY 1 DAY)
     Route: 055
  91. CICLESONIDE [Suspect]
     Active Substance: CICLESONIDE
     Dosage: 2 DOSAGE FORM
     Route: 055
  92. CICLESONIDE [Suspect]
     Active Substance: CICLESONIDE
     Dosage: 2 DOSAGE FORM
     Route: 055
  93. CICLESONIDE [Suspect]
     Active Substance: CICLESONIDE
     Dosage: 4 DOSAGE FORM, QD
     Route: 055
  94. CICLESONIDE [Suspect]
     Active Substance: CICLESONIDE
     Dosage: 4 DOSAGE FORM, QD
     Route: 055
  95. CICLESONIDE [Suspect]
     Active Substance: CICLESONIDE
     Dosage: 4 DOSAGE FORM, QD (1 EVERY 1 DAY)
     Route: 055
  96. CICLESONIDE [Suspect]
     Active Substance: CICLESONIDE
     Dosage: 4 DOSAGE FORM, QD (1 EVERY 1 DAY)
     Route: 065
  97. CICLESONIDE [Suspect]
     Active Substance: CICLESONIDE
     Dosage: UNK, QD
     Route: 055
  98. CICLESONIDE [Suspect]
     Active Substance: CICLESONIDE
     Dosage: UNK, QD
     Route: 065
  99. CICLESONIDE [Suspect]
     Active Substance: CICLESONIDE
     Indication: Product used for unknown indication
     Dosage: UNK, QD (1 EVERY 1 DAY)
     Route: 055
  100. CICLESONIDE [Suspect]
     Active Substance: CICLESONIDE
     Dosage: UNK, QD (1 EVERY 1 DAY)
     Route: 065
  101. CICLESONIDE [Suspect]
     Active Substance: CICLESONIDE
     Dosage: UNK
     Route: 048
  102. FLOVENT [Suspect]
     Active Substance: FLUTICASONE PROPIONATE
     Dosage: 1000 MG, QD
     Route: 065
  103. FLOVENT [Suspect]
     Active Substance: FLUTICASONE PROPIONATE
     Dosage: 1000 MG, QD
     Route: 065
  104. FLOVENT [Suspect]
     Active Substance: FLUTICASONE PROPIONATE
     Indication: Product used for unknown indication
     Dosage: 1000 MG, QD (1 EVERY 1 DAY)
     Route: 065
  105. FLOVENT [Suspect]
     Active Substance: FLUTICASONE PROPIONATE
     Dosage: 500 MG, QD
     Route: 065
  106. FLOVENT [Suspect]
     Active Substance: FLUTICASONE PROPIONATE
     Dosage: 500 MG, QD
     Route: 065
  107. FLOVENT [Suspect]
     Active Substance: FLUTICASONE PROPIONATE
     Dosage: UNK
     Route: 065
  108. FLOVENT [Suspect]
     Active Substance: FLUTICASONE PROPIONATE
     Dosage: UNK
     Route: 065
  109. FLOVENT [Suspect]
     Active Substance: FLUTICASONE PROPIONATE
     Dosage: UNK
     Route: 065
  110. FLUTICASONE PROPIONATE AND SALMETEROL [Suspect]
     Active Substance: FLUTICASONE PROPIONATE\SALMETEROL XINAFOATE
     Indication: Product used for unknown indication
     Dosage: 2 DF, QD, INHALATION
     Route: 065
  111. MONTELUKAST [Suspect]
     Active Substance: MONTELUKAST SODIUM
     Indication: Product used for unknown indication
     Dosage: 10 MG, QD (1 EVERY 1 DAY)
     Route: 065
  112. MONTELUKAST [Suspect]
     Active Substance: MONTELUKAST SODIUM
     Dosage: 10 MG, QD (1 EVERY 1 DAY)
     Route: 065
  113. MONTELUKAST [Suspect]
     Active Substance: MONTELUKAST SODIUM
     Dosage: 10 MG, QD (1 EVERY 1 DAY)
     Route: 065
  114. MONTELUKAST [Suspect]
     Active Substance: MONTELUKAST SODIUM
     Dosage: 10 MG, QD (1 EVERY 1 DAY)
     Route: 065
  115. MONTELUKAST [Suspect]
     Active Substance: MONTELUKAST SODIUM
     Dosage: 10 MG, QD (1 EVERY 1 DAY)
     Route: 065
  116. MONTELUKAST [Suspect]
     Active Substance: MONTELUKAST SODIUM
     Dosage: 10 MG, QD (1 EVERY 1 DAY)
     Route: 065
  117. MONTELUKAST [Suspect]
     Active Substance: MONTELUKAST SODIUM
     Dosage: 10 MG, QD (1 EVERY 1 DAY)
     Route: 065
  118. MONTELUKAST [Suspect]
     Active Substance: MONTELUKAST SODIUM
     Dosage: 10 MG, QD (1 EVERY 1 DAY)
     Route: 065
  119. MONTELUKAST [Suspect]
     Active Substance: MONTELUKAST SODIUM
     Dosage: 10 MG, QD (1 EVERY 1 DAY)
     Route: 065
  120. MEPOLIZUMAB [Suspect]
     Active Substance: MEPOLIZUMAB
     Dosage: 100 MG, QD
     Route: 042
  121. MEPOLIZUMAB [Suspect]
     Active Substance: MEPOLIZUMAB
     Dosage: 100 MG, QD
     Route: 042
  122. MEPOLIZUMAB [Suspect]
     Active Substance: MEPOLIZUMAB
     Dosage: 100 MG, QD
     Route: 042
  123. MEPOLIZUMAB [Suspect]
     Active Substance: MEPOLIZUMAB
     Dosage: 100 MG, QD
     Route: 042
  124. MEPOLIZUMAB [Suspect]
     Active Substance: MEPOLIZUMAB
     Dosage: 100 MG, QD
     Route: 042
  125. MEPOLIZUMAB [Suspect]
     Active Substance: MEPOLIZUMAB
     Dosage: 100 MG, QD
     Route: 042
  126. MEPOLIZUMAB [Suspect]
     Active Substance: MEPOLIZUMAB
     Dosage: 100 MG, QD
     Route: 042
  127. MEPOLIZUMAB [Suspect]
     Active Substance: MEPOLIZUMAB
     Dosage: 100 MG, QD
     Route: 042
  128. MEPOLIZUMAB [Suspect]
     Active Substance: MEPOLIZUMAB
     Dosage: 100 MG, QD
     Route: 042
  129. MEPOLIZUMAB [Suspect]
     Active Substance: MEPOLIZUMAB
     Dosage: 100 MG, QD
     Route: 065
  130. MEPOLIZUMAB [Suspect]
     Active Substance: MEPOLIZUMAB
     Dosage: 100 MG, QD
     Route: 065
  131. MEPOLIZUMAB [Suspect]
     Active Substance: MEPOLIZUMAB
     Dosage: 100 MG, QD
     Route: 065
  132. MEPOLIZUMAB [Suspect]
     Active Substance: MEPOLIZUMAB
     Indication: Asthma
     Dosage: 100 MG, QD (1 EVERY 1 DAY)
     Route: 042
  133. MEPOLIZUMAB [Suspect]
     Active Substance: MEPOLIZUMAB
     Dosage: UNK
     Route: 042
  134. MEPOLIZUMAB [Suspect]
     Active Substance: MEPOLIZUMAB
     Dosage: UNK
     Route: 042
  135. MEPOLIZUMAB [Suspect]
     Active Substance: MEPOLIZUMAB
     Dosage: UNK
     Route: 042
  136. MEPOLIZUMAB [Suspect]
     Active Substance: MEPOLIZUMAB
     Dosage: UNK
     Route: 065
  137. NUCALA [Suspect]
     Active Substance: MEPOLIZUMAB
     Dosage: 100 MG, QD (1 EVERY 1 DAY)
     Route: 042
  138. NUCALA [Suspect]
     Active Substance: MEPOLIZUMAB
     Dosage: 100 MG, QD (1 EVERY 1 DAY)
     Route: 042
  139. NUCALA [Suspect]
     Active Substance: MEPOLIZUMAB
     Dosage: 100 MG, QD (1 EVERY 1 DAY)
     Route: 042
  140. NUCALA [Suspect]
     Active Substance: MEPOLIZUMAB
     Dosage: 100 MG, QD (1 EVERY 1 DAY)
     Route: 042
  141. NUCALA [Suspect]
     Active Substance: MEPOLIZUMAB
     Dosage: 100 MG, QD (1 EVERY 1 DAY)
     Route: 042
  142. NUCALA [Suspect]
     Active Substance: MEPOLIZUMAB
     Dosage: 100 MG, QD (1 EVERY 1 DAY)
     Route: 042
  143. NUCALA [Suspect]
     Active Substance: MEPOLIZUMAB
     Dosage: 100 MG, QD (1 EVERY 1 DAY)
     Route: 042
  144. NUCALA [Suspect]
     Active Substance: MEPOLIZUMAB
     Dosage: 100 MG, QD (1 EVERY 1 DAY)
     Route: 042
  145. NUCALA [Suspect]
     Active Substance: MEPOLIZUMAB
     Dosage: 100 MG, QD (1 EVERY 1 DAY)
     Route: 042
  146. NUCALA [Suspect]
     Active Substance: MEPOLIZUMAB
     Indication: Product used for unknown indication
     Dosage: 100 MG, QD (1 EVERY 1 DAY)
     Route: 065
  147. NUCALA [Suspect]
     Active Substance: MEPOLIZUMAB
     Dosage: 100 MG, QD (1 EVERY 1 DAY)
     Route: 065
  148. NUCALA [Suspect]
     Active Substance: MEPOLIZUMAB
     Dosage: 100 MG, QD (1 EVERY 1 DAY)
     Route: 065
  149. NUCALA [Suspect]
     Active Substance: MEPOLIZUMAB
     Dosage: 100 MG
     Route: 065
  150. NUCALA [Suspect]
     Active Substance: MEPOLIZUMAB
     Dosage: UNK
     Route: 065
  151. NUCALA [Suspect]
     Active Substance: MEPOLIZUMAB
     Dosage: UNK
     Route: 065
  152. NUCALA [Suspect]
     Active Substance: MEPOLIZUMAB
     Dosage: UNK
     Route: 065
  153. NUCALA [Suspect]
     Active Substance: MEPOLIZUMAB
     Dosage: UNK
     Route: 065
  154. CETIRIZINE HYDROCHLORIDE [Suspect]
     Active Substance: CETIRIZINE HYDROCHLORIDE
     Dosage: 1 DOSAGE FORM, QD (1 EVERY 1 DAY)
     Route: 065
  155. CETIRIZINE HYDROCHLORIDE [Suspect]
     Active Substance: CETIRIZINE HYDROCHLORIDE
     Indication: Multiple allergies
     Dosage: 2 DOSAGE FORM, QD (1 EVERY 1 DAY)
     Route: 065
  156. CETIRIZINE HYDROCHLORIDE [Suspect]
     Active Substance: CETIRIZINE HYDROCHLORIDE
     Dosage: UNK
     Route: 065
  157. ALBUTEROL [Suspect]
     Active Substance: ALBUTEROL
     Dosage: UNK, QD (1 EVERY 1 DAY)
     Route: 065
  158. ALBUTEROL [Suspect]
     Active Substance: ALBUTEROL
     Indication: Product used for unknown indication
     Dosage: UNK
     Route: 065
  159. ALBUTEROL [Suspect]
     Active Substance: ALBUTEROL
     Dosage: UNK
     Route: 065
  160. ALBUTEROL [Suspect]
     Active Substance: ALBUTEROL
     Dosage: UNK
     Route: 065
  161. SINGULAIR [Suspect]
     Active Substance: MONTELUKAST SODIUM
     Indication: Product used for unknown indication
     Dosage: 10 MG, QD
     Route: 065
  162. SINGULAIR [Suspect]
     Active Substance: MONTELUKAST SODIUM
     Dosage: 10 MG, QD
     Route: 065
  163. SINGULAIR [Suspect]
     Active Substance: MONTELUKAST SODIUM
     Dosage: 10 MG, QD
     Route: 065
  164. SINGULAIR [Suspect]
     Active Substance: MONTELUKAST SODIUM
     Dosage: 10 MG, QD
     Route: 065
  165. SINGULAIR [Suspect]
     Active Substance: MONTELUKAST SODIUM
     Dosage: 10 MG, QD
     Route: 065
  166. SINGULAIR [Suspect]
     Active Substance: MONTELUKAST SODIUM
     Dosage: 10 MG, QD (1 EVERY 1 DAY)
     Route: 065
  167. SINGULAIR [Suspect]
     Active Substance: MONTELUKAST SODIUM
     Dosage: 10 MG, QD (1 EVERY 1 DAY)
     Route: 065
  168. SINGULAIR [Suspect]
     Active Substance: MONTELUKAST SODIUM
     Dosage: UNK
     Route: 065
  169. SINGULAIR [Suspect]
     Active Substance: MONTELUKAST SODIUM
     Dosage: UNK
     Route: 065
  170. SINGULAIR [Suspect]
     Active Substance: MONTELUKAST SODIUM
     Dosage: UNK
     Route: 065
  171. SINGULAIR [Suspect]
     Active Substance: MONTELUKAST SODIUM
     Indication: Product used for unknown indication
     Dosage: UNK
     Route: 065
  172. SINGULAIR [Suspect]
     Active Substance: MONTELUKAST SODIUM
     Dosage: UNK
     Route: 065
  173. SINGULAIR [Suspect]
     Active Substance: MONTELUKAST SODIUM
     Dosage: UNK
     Route: 065
  174. SPIRIVA [Suspect]
     Active Substance: TIOTROPIUM BROMIDE MONOHYDRATE
     Indication: Product used for unknown indication
     Dosage: 5 G, QD
     Route: 065
  175. SPIRIVA [Suspect]
     Active Substance: TIOTROPIUM BROMIDE MONOHYDRATE
     Indication: Product used for unknown indication
     Dosage: 5 G, QD (1 EVERY 1 DAY)
     Route: 055
  176. SPIRIVA [Suspect]
     Active Substance: TIOTROPIUM BROMIDE MONOHYDRATE
     Dosage: 5 G, QD (1 EVERY 1 DAY)
     Route: 055
  177. SPIRIVA [Suspect]
     Active Substance: TIOTROPIUM BROMIDE MONOHYDRATE
     Dosage: 5 G, QD (1 EVERY 1 DAY)
     Route: 055
  178. SPIRIVA [Suspect]
     Active Substance: TIOTROPIUM BROMIDE MONOHYDRATE
     Dosage: 5 G, QD (1 EVERY 1 DAY)
     Route: 055
  179. SPIRIVA [Suspect]
     Active Substance: TIOTROPIUM BROMIDE MONOHYDRATE
     Dosage: 5 G, QD (1 EVERY 1 DAY)
     Route: 065
  180. SPIRIVA [Suspect]
     Active Substance: TIOTROPIUM BROMIDE MONOHYDRATE
     Dosage: UNK
     Route: 065
  181. TIOTROPIUM BROMIDE MONOHYDRATE [Suspect]
     Active Substance: TIOTROPIUM BROMIDE MONOHYDRATE
     Indication: Product used for unknown indication
     Dosage: 5 G, QD (1 EVERY 1 DAY)
     Route: 065
  182. TIOTROPIUM BROMIDE MONOHYDRATE [Suspect]
     Active Substance: TIOTROPIUM BROMIDE MONOHYDRATE
     Dosage: 5 G, QD (1 EVERY 1 DAY)
     Route: 065
  183. TIOTROPIUM BROMIDE MONOHYDRATE [Suspect]
     Active Substance: TIOTROPIUM BROMIDE MONOHYDRATE
     Dosage: 5 G, QD (1 EVERY 1 DAY)
     Route: 065
  184. TIOTROPIUM BROMIDE MONOHYDRATE [Suspect]
     Active Substance: TIOTROPIUM BROMIDE MONOHYDRATE
     Dosage: UNK
     Route: 065
  185. VENTOLIN [Suspect]
     Active Substance: ALBUTEROL SULFATE
     Indication: Product used for unknown indication
     Dosage: UNK
     Route: 065

REACTIONS (13)
  - Death [Fatal]
  - Eye disorder [Fatal]
  - Illness [Fatal]
  - Influenza [Fatal]
  - Infection [Fatal]
  - Lower respiratory tract infection [Fatal]
  - Pneumonia [Fatal]
  - Pneumonitis [Fatal]
  - Asthma [Fatal]
  - Pyrexia [Fatal]
  - Malaise [Fatal]
  - Product dose omission issue [Fatal]
  - Hospitalisation [Fatal]
